FAERS Safety Report 9985661 (Version 1)
Quarter: 2014Q1

REPORT INFORMATION
  Report Type: Report from Study
  Country: US (occurrence: US)
  Receive Date: 20140307
  Receipt Date: 20140307
  Transmission Date: 20141002
  Serious: No
  Sender: FDA-Public Use
  Company Number: US-ABBVIE-13P-163-1087728-00

PATIENT
  Age: 48 Year
  Sex: Female

DRUGS (4)
  1. HUMIRA [Suspect]
     Indication: CROHN^S DISEASE
     Dates: start: 20130418
  2. HUMIRA [Suspect]
     Dates: start: 20130502
  3. ALPRAZOLAM [Concomitant]
     Indication: ANXIETY
     Dosage: EVERY DAY
  4. TEMAZEPAM [Concomitant]
     Indication: ANXIETY
     Dosage: EVERY DAY

REACTIONS (2)
  - Injection site bruising [Recovering/Resolving]
  - Injection site haemorrhage [Recovering/Resolving]
